FAERS Safety Report 21047673 (Version 4)
Quarter: 2023Q2

REPORT INFORMATION
  Report Type: Report from Study
  Country: JP (occurrence: JP)
  Receive Date: 20220706
  Receipt Date: 20230628
  Transmission Date: 20230722
  Serious: Yes (Hospitalization)
  Sender: FDA-Public Use
  Company Number: JP-BAXTER-2022BAX013083

PATIENT
  Age: 39 Year
  Sex: Female
  Weight: 51.2 kg

DRUGS (21)
  1. CYCLOPHOSPHAMIDE [Suspect]
     Active Substance: CYCLOPHOSPHAMIDE
     Dosage: 40 MG/KG, QD, DOSAGE FORM: INJECTION
     Route: 065
     Dates: start: 20220302, end: 20220302
  2. MIRENA [Suspect]
     Active Substance: LEVONORGESTREL
     Indication: Adenomyosis
     Dosage: 52 MG
     Route: 015
     Dates: start: 20230112
  3. BEPOTASTINE BESYLATE [Suspect]
     Active Substance: BEPOTASTINE BESYLATE
     Indication: Rhinitis allergic
     Dosage: 5 MG, EVERY 12 HOURS
     Route: 048
     Dates: start: 20230311
  4. TACROLIMUS [Concomitant]
     Active Substance: TACROLIMUS
     Indication: Prophylaxis against transplant rejection
     Dosage: 9.5 MG, QD
     Route: 048
     Dates: start: 20220609
  5. TACROLIMUS [Concomitant]
     Active Substance: TACROLIMUS
     Dosage: 7.5 MG, QD
     Route: 048
     Dates: start: 20220624
  6. TACROLIMUS [Concomitant]
     Active Substance: TACROLIMUS
     Dosage: 7.5 MG, REDUCED FROM ONCE DAILY TO THREE TIMES WEEKLY
     Route: 048
     Dates: start: 20221201
  7. TACROLIMUS [Concomitant]
     Active Substance: TACROLIMUS
     Dosage: 7.5 MG, REDUCED FROM THREE TIMES WEEKLY TO TWICE WEEKLY
     Route: 048
     Dates: start: 20230304
  8. DIPYRIDAMOLE [Concomitant]
     Active Substance: DIPYRIDAMOLE
     Indication: Embolism
     Dosage: 75 MG, EVERY 6 HOURS
     Route: 048
     Dates: start: 20220305
  9. WARFARIN [Concomitant]
     Active Substance: WARFARIN
     Indication: Thrombosis prophylaxis
     Dosage: UNK
     Route: 048
  10. WARFARIN [Concomitant]
     Active Substance: WARFARIN
     Dosage: 2 MG, QD (DOSE REDUCED)
     Route: 048
     Dates: start: 20220528
  11. WARFARIN [Concomitant]
     Active Substance: WARFARIN
     Dosage: 2.5 MG, QD (DOSE INCREASED)
     Route: 048
     Dates: start: 20220602
  12. WARFARIN [Concomitant]
     Active Substance: WARFARIN
     Dosage: 3 MG, QD (DOSE INCREASED)
     Route: 048
     Dates: start: 20220609
  13. URSODIOL [Concomitant]
     Active Substance: URSODIOL
     Indication: Hepatic function abnormal
     Dosage: 200 MG, EVERY 8 HOURS
     Route: 048
     Dates: start: 20220305
  14. LANSOPRAZOLE [Concomitant]
     Active Substance: LANSOPRAZOLE
     Indication: Gastrointestinal mucosal disorder
     Dosage: 30 MG, QD
     Route: 048
     Dates: start: 20220305
  15. LANSOPRAZOLE [Concomitant]
     Active Substance: LANSOPRAZOLE
     Indication: Oedema
     Dosage: 10 MG, QD
     Route: 048
     Dates: start: 20220609
  16. Incremin [Concomitant]
     Indication: Anaemia
     Dosage: 10 ML, EVERY 8 HOURS, SOLUBLE
     Route: 048
     Dates: start: 20220623
  17. Incremin [Concomitant]
     Dosage: 20 ML, EVERY 12 HOURS
     Route: 048
     Dates: start: 20221216
  18. BUTYLSCOPOLAMINE BROMIDE [Concomitant]
     Active Substance: BUTYLSCOPOLAMINE BROMIDE
     Indication: Dysmenorrhoea
     Dosage: 10 MG, EVERY 8 HOURS
     Route: 048
     Dates: start: 20220630
  19. CALONAL [Concomitant]
     Active Substance: ACETAMINOPHEN
     Indication: Adenomyosis
     Dosage: 1200 MG, QD
     Route: 048
     Dates: start: 20220528
  20. CALONAL [Concomitant]
     Active Substance: ACETAMINOPHEN
     Dosage: 400 MG
     Route: 048
     Dates: start: 20220528
  21. CELECOXIB [Concomitant]
     Active Substance: CELECOXIB
     Indication: Adenomyosis
     Dosage: 200 MG
     Route: 048
     Dates: start: 20220709

REACTIONS (5)
  - Dysmenorrhoea [Recovered/Resolved]
  - Condition aggravated [Recovered/Resolved]
  - Dysmenorrhoea [Recovered/Resolved]
  - Condition aggravated [Recovered/Resolved]
  - Liver disorder [Recovering/Resolving]

NARRATIVE: CASE EVENT DATE: 20220614
